FAERS Safety Report 12545305 (Version 8)
Quarter: 2017Q2

REPORT INFORMATION
  Report Type: Report from Study
  Country: JP (occurrence: JP)
  Receive Date: 20160711
  Receipt Date: 20170421
  Transmission Date: 20170830
  Serious: Yes (Hospitalization, Other)
  Sender: FDA-Public Use
  Company Number: JP-PFIZER INC-2015351549

PATIENT
  Age: 36 Year
  Sex: Female
  Weight: 60 kg

DRUGS (8)
  1. SIROLIMUS. [Suspect]
     Active Substance: SIROLIMUS
     Indication: LYMPHANGIOLEIOMYOMATOSIS
     Dosage: 2 MG, 1X/DAY
     Route: 048
     Dates: start: 20150609, end: 20150930
  2. LOXOPROFEN SODIUM HYDRATE [Concomitant]
     Active Substance: LOXOPROFEN SODIUM DIHYDRATE
     Dosage: 60 MG, AS NEEDED
     Route: 048
  3. SENNOSIDE /00571901/ [Concomitant]
     Active Substance: SENNOSIDES A AND B
     Indication: PROPHYLAXIS
     Dosage: UNK
     Route: 048
     Dates: start: 20150609, end: 20150613
  4. SODIUM PICOSULFATE [Concomitant]
     Active Substance: SODIUM PICOSULFATE
     Dosage: UNK
     Route: 048
     Dates: start: 20151006, end: 20151006
  5. MUCOSTA [Concomitant]
     Active Substance: REBAMIPIDE
     Dosage: UNK
     Route: 048
     Dates: start: 20151007, end: 20151017
  6. TASIGNA [Interacting]
     Active Substance: NILOTINIB
     Indication: CHRONIC MYELOID LEUKAEMIA
     Dosage: 300 MG, 2X/DAY
     Route: 048
     Dates: start: 20150911, end: 20150930
  7. MAGCOROL P [Concomitant]
     Active Substance: MAGNESIUM CITRATE
     Dosage: UNK
     Route: 048
     Dates: start: 20151006, end: 20151006
  8. TASIGNA [Interacting]
     Active Substance: NILOTINIB
     Dosage: UNK
     Dates: start: 20151013

REACTIONS (16)
  - Liver function test increased [Recovered/Resolved]
  - Drug interaction [Unknown]
  - Glossitis [Recovered/Resolved]
  - Chronic myeloid leukaemia [Not Recovered/Not Resolved]
  - Constipation [Recovering/Resolving]
  - Proctalgia [Unknown]
  - Dermatitis acneiform [Recovering/Resolving]
  - Diarrhoea [Recovered/Resolved]
  - Dysmenorrhoea [Unknown]
  - Anal abscess [Not Recovered/Not Resolved]
  - Respiratory tract infection [Recovered/Resolved]
  - Menstruation irregular [Unknown]
  - Headache [Recovered/Resolved]
  - Back pain [Recovered/Resolved]
  - Oral herpes [Unknown]
  - Pleural effusion [Unknown]

NARRATIVE: CASE EVENT DATE: 20150616
